FAERS Safety Report 11891358 (Version 1)
Quarter: 2016Q1

REPORT INFORMATION
  Report Type: Spontaneous
  Country: IT (occurrence: IT)
  Receive Date: 20160106
  Receipt Date: 20160106
  Transmission Date: 20160526
  Serious: Yes (Other)
  Sender: FDA-Public Use
  Company Number: IT-TEVA-622335ACC

PATIENT
  Age: 57 Year
  Sex: Female
  Weight: 57 kg

DRUGS (3)
  1. GEMCITABINE [Suspect]
     Active Substance: GEMCITABINE\GEMCITABINE HYDROCHLORIDE
     Indication: OVARIAN CANCER
     Dosage: 1760 MG CYCLICAL
     Route: 042
     Dates: start: 20151026, end: 20151221
  2. CARBOPLATINO TEVA - 600 MG/60 ML - TEVA PHARMA B.V [Suspect]
     Active Substance: CARBOPLATIN
     Indication: OVARIAN CANCER
     Dosage: 835.9 MG CYCLICAL
     Route: 042
     Dates: start: 20151026, end: 20151221
  3. AVASTIN [Suspect]
     Active Substance: BEVACIZUMAB
     Indication: OVARIAN CANCER
     Dosage: 1050 MG CYCLICAL
     Route: 042
     Dates: start: 20151026, end: 20151221

REACTIONS (3)
  - Retching [Recovered/Resolved]
  - Tremor [Recovered/Resolved]
  - Tachycardia [Recovered/Resolved]

NARRATIVE: CASE EVENT DATE: 20151221
